FAERS Safety Report 5224746-0 (Version None)
Quarter: 2007Q1

REPORT INFORMATION
  Report Type: 
  Country: None (occurrence: None)
  Receive Date: 20070129
  Receipt Date: 20070129
  Transmission Date: 20070707
  Serious: Yes (Hospitalization)
  Sender: FDA-Public Use
  Company Number: None

PATIENT
  Age: 89 Year
  Sex: Male
  Weight: 89.3586 kg

DRUGS (12)
  1. VINCRISTINE [Suspect]
     Indication: B-CELL LYMPHOMA
     Dosage: 2 MG X1 IV
     Route: 042
     Dates: start: 20061219, end: 20061219
  2. METFORMIN HCL [Concomitant]
  3. OMEPRAZOLE [Concomitant]
  4. POTASSIUM CHLORIDE [Concomitant]
  5. ALLOPURINOL SODIUM [Concomitant]
  6. PREDNISONE [Concomitant]
  7. PROMETHAZINE [Concomitant]
  8. LISINOPRIL [Concomitant]
  9. LOVASTATIN [Concomitant]
  10. FUROSEMIDE [Concomitant]
  11. DILTIAZEM [Concomitant]
  12. FERROUS SULFATE TAB [Concomitant]

REACTIONS (10)
  - ASTHENIA [None]
  - BACK PAIN [None]
  - BALANCE DISORDER [None]
  - COORDINATION ABNORMAL [None]
  - FAECAL INCONTINENCE [None]
  - FALL [None]
  - GAIT DISTURBANCE [None]
  - HEAD INJURY [None]
  - NEUROTOXICITY [None]
  - PARAESTHESIA [None]
